FAERS Safety Report 11696707 (Version 4)
Quarter: 2016Q1

REPORT INFORMATION
  Report Type: Report from Study
  Country: JP (occurrence: JP)
  Receive Date: 20151104
  Receipt Date: 20160223
  Transmission Date: 20160525
  Serious: Yes (Death, Life-Threatening)
  Sender: FDA-Public Use
  Company Number: JP-SA-THYM-1002772

PATIENT
  Age: 53 Year
  Sex: Female
  Weight: 52.2 kg

DRUGS (13)
  1. METHYLPREDNISOLONE SODIUM SUCCINATE. [Concomitant]
     Active Substance: METHYLPREDNISOLONE SODIUM SUCCINATE
     Indication: PREMEDICATION
     Dosage: 2 MG/KG, QD
     Route: 042
     Dates: start: 20110812
  2. DANAPAROID SODIUM [Concomitant]
     Active Substance: DANAPAROID SODIUM
     Indication: DISSEMINATED INTRAVASCULAR COAGULATION
     Dosage: 1250 U, UNK DOSE:1250 UNIT(S)
     Route: 065
     Dates: start: 20110809, end: 20110816
  3. OMEPRAL [Concomitant]
     Active Substance: OMEPRAZOLE
     Indication: PROPHYLAXIS AGAINST GASTROINTESTINAL ULCER
  4. FRAGMIN [Concomitant]
     Active Substance: DALTEPARIN SODIUM
     Indication: PROPHYLAXIS
     Dates: end: 20110816
  5. TAZOBACTAM/PIPERACILLIN [Concomitant]
     Indication: INFECTION
     Dosage: 4.5 G, UNK
     Route: 065
     Dates: start: 20110809, end: 20110816
  6. ULINASTATIN [Concomitant]
     Active Substance: ULINASTATIN
     Indication: DISSEMINATED INTRAVASCULAR COAGULATION
     Dosage: 150000 U, UNK DOSE:150000 UNIT(S)
     Route: 065
     Dates: start: 20110713, end: 20110816
  7. TACROLIMUS. [Concomitant]
     Active Substance: TACROLIMUS
     Indication: ACUTE GRAFT VERSUS HOST DISEASE
     Dosage: UNK
     Dates: start: 20110525, end: 20110808
  8. OMEPRAZOLE SODIUM [Concomitant]
     Active Substance: OMEPRAZOLE SODIUM
     Indication: GASTRIC ULCER
     Dosage: 20 MG, UNK
     Route: 065
     Dates: start: 20110713, end: 20110816
  9. ORGARAN [Concomitant]
     Active Substance: DANAPAROID SODIUM
     Indication: DISSEMINATED INTRAVASCULAR COAGULATION
     Dates: end: 20110816
  10. MIRACLID [Concomitant]
     Active Substance: ULINASTATIN
     Indication: DISSEMINATED INTRAVASCULAR COAGULATION
     Dates: end: 20110816
  11. PREDONINE [Concomitant]
     Active Substance: PREDNISOLONE\PREDNISOLONE ACETATE\PREDNISOLONE SODIUM SUCCINATE
     Indication: PROPHYLAXIS
     Dates: end: 20110812
  12. THYMOGLOBULINE [Suspect]
     Active Substance: LAPINE T-LYMPHOCYTE IMMUNE GLOBULIN
     Indication: ACUTE GRAFT VERSUS HOST DISEASE
     Dosage: 50 MG, QD
     Route: 042
     Dates: start: 20110811, end: 20110811
  13. ZOSYN [Concomitant]
     Active Substance: PIPERACILLIN SODIUM\TAZOBACTAM SODIUM
     Indication: PNEUMONIA
     Dates: end: 20110816

REACTIONS (1)
  - Respiratory disorder [Not Recovered/Not Resolved]

NARRATIVE: CASE EVENT DATE: 20110812
